FAERS Safety Report 10178349 (Version 1)
Quarter: 2014Q2

REPORT INFORMATION
  Report Type: Spontaneous
  Country: BR (occurrence: BR)
  Receive Date: 20140519
  Receipt Date: 20140519
  Transmission Date: 20141212
  Serious: Yes (Life-Threatening)
  Sender: FDA-Public Use
  Company Number: BR-ACCORD-023720

PATIENT
  Age: 69 Year
  Sex: Female
  Weight: 69 kg

DRUGS (5)
  1. PACLITAXEL/PACLITAXEL LIPOSOME [Suspect]
     Indication: OVARIAN CANCER
     Dosage: 2ND CYCLE
     Route: 042
     Dates: start: 20140416, end: 20140416
  2. RANITIDINE [Concomitant]
     Indication: PROPHYLAXIS
     Route: 042
     Dates: start: 20140416, end: 20140416
  3. NAUSEDRON [Concomitant]
     Indication: PROPHYLAXIS
     Route: 042
     Dates: start: 20140416, end: 20140416
  4. DEXAMETHASONE [Concomitant]
     Indication: PROPHYLAXIS
     Dosage: WITH SF 100ML
     Route: 042
     Dates: start: 20140416, end: 20140416
  5. TECNOCARB [Concomitant]
     Indication: OVARIAN CANCER
     Route: 042
     Dates: start: 20140416, end: 20140416

REACTIONS (6)
  - Oxygen saturation decreased [Recovered/Resolved]
  - Hypertension [Recovered/Resolved]
  - Cyanosis [Recovered/Resolved]
  - Dyspnoea [Recovered/Resolved]
  - Body temperature decreased [None]
  - Heart rate increased [None]
